FAERS Safety Report 4314847-3 (Version None)
Quarter: 2004Q1

REPORT INFORMATION
  Report Type: 
  Country: None (occurrence: None)
  Receive Date: 20040308
  Receipt Date: 20040218
  Transmission Date: 20041129
  Serious: Yes (Life-Threatening)
  Sender: FDA-Public Use
  Company Number: RB-521-2004

PATIENT
  Age: 44 Year
  Sex: Female

DRUGS (6)
  1. BUPRENORPHINE HYDROCHLORIDE [Suspect]
     Indication: DRUG DEPENDENCE
     Dosage: 2 MG SL
     Route: 060
     Dates: start: 20020815, end: 20040203
  2. FLUOXETINE HCL [Concomitant]
  3. RAMIPRIL [Concomitant]
  4. SIMVASTATIN [Concomitant]
  5. INSULIN [Concomitant]
  6. INSULIN LISPRO [Concomitant]

REACTIONS (1)
  - HYPOGLYCAEMIA [None]
